FAERS Safety Report 4638839-X (Version None)
Quarter: 2005Q2

REPORT INFORMATION
  Report Type: 
  Country: None (occurrence: None)
  Receive Date: 20050418
  Receipt Date: 20050418
  Transmission Date: 20051028
  Serious: Yes (Other)
  Sender: FDA-Public Use
  Company Number: None

PATIENT
  Sex: Female
  Weight: 56.6996 kg

DRUGS (2)
  1. SEROQUEL [Suspect]
     Indication: THINKING ABNORMAL
     Dosage: 12.5   TID   ORAL
     Route: 048
     Dates: start: 20050315, end: 20050317
  2. VISTARIL [Concomitant]

REACTIONS (3)
  - FEELING ABNORMAL [None]
  - HEADACHE [None]
  - MUSCLE TWITCHING [None]
